FAERS Safety Report 9746795 (Version 1)
Quarter: 2013Q4

REPORT INFORMATION
  Report Type: Spontaneous
  Country: SE (occurrence: SE)
  Receive Date: 20131211
  Receipt Date: 20131211
  Transmission Date: 20140711
  Serious: Yes (Hospitalization)
  Sender: FDA-Public Use
  Company Number: PHHY2013SE141802

PATIENT
  Age: 16 Year
  Sex: Male

DRUGS (7)
  1. RISPERIDONE [Suspect]
     Indication: BIPOLAR DISORDER
     Dosage: 4 MG, UNK
  2. RISPERIDONE [Suspect]
     Indication: ABNORMAL BEHAVIOUR
  3. TOPIRAMATE [Suspect]
     Indication: BIPOLAR DISORDER
     Dosage: 200 MG, UNK
  4. TOPIRAMATE [Suspect]
     Indication: ABNORMAL BEHAVIOUR
  5. ARIPIPRAZOLE [Suspect]
     Indication: BIPOLAR DISORDER
     Dosage: 15 MG, UNK
  6. VENLAFAXINE [Suspect]
     Dosage: 300 MG, UNK
  7. ZONISAMIDE [Suspect]
     Dosage: 400 MG, UNK

REACTIONS (7)
  - Rhabdomyolysis [Recovering/Resolving]
  - Vomiting [Recovering/Resolving]
  - Renal failure acute [Recovering/Resolving]
  - Myalgia [Recovering/Resolving]
  - Muscle spasms [Recovering/Resolving]
  - Hyperhidrosis [Recovering/Resolving]
  - Diarrhoea [Recovering/Resolving]
